FAERS Safety Report 4390659-X (Version None)
Quarter: 2004Q3

REPORT INFORMATION
  Report Type: 
  Country: None (occurrence: None)
  Receive Date: 20040706
  Receipt Date: 20040630
  Transmission Date: 20050211
  Serious: Yes (Disabling)
  Sender: FDA-Public Use
  Company Number: US-MERCK-0407USA00104

PATIENT
  Sex: Male

DRUGS (7)
  1. HEPSERA [Concomitant]
     Route: 065
  2. NEPHRO-VITE RX [Concomitant]
     Route: 065
  3. CLONIDINE [Concomitant]
     Route: 065
  4. EPIVIR [Concomitant]
     Route: 065
  5. PRINIVIL [Suspect]
     Indication: HYPERTENSION
     Route: 048
  6. VIRACEPT [Concomitant]
     Route: 065
  7. RETROVIR [Concomitant]
     Route: 065

REACTIONS (3)
  - ACQUIRED NIGHT BLINDNESS [None]
  - CHLOROPSIA [None]
  - VISUAL DISTURBANCE [None]
